FAERS Safety Report 6100673-1 (Version None)
Quarter: 2009Q1

REPORT INFORMATION
  Report Type: 
  Country: None (occurrence: None)
  Receive Date: 20090303
  Receipt Date: 20090223
  Transmission Date: 20090719
  Serious: Yes (Disabling)
  Sender: FDA-Public Use
  Company Number: PHEH2009US01710

PATIENT
  Sex: Female
  Weight: 84.807 kg

DRUGS (17)
  1. RECLAST [Suspect]
     Indication: OSTEOPOROSIS
     Dosage: 5 MG, ONCE/SINGLE
     Dates: start: 20080918, end: 20080918
  2. SINGULAIR [Concomitant]
     Dosage: 10 MG, QD
  3. RANITIDINE [Concomitant]
  4. OMEPRAZOLE [Concomitant]
     Dosage: 20 MG, QD
  5. CALCIUM W/VITAMIN D NOS [Concomitant]
     Dosage: 1 OR 2 PER DAY
  6. ADVAIR HFA [Concomitant]
     Dosage: 500 MCG / 50 MCG
  7. ADVAIR HFA [Concomitant]
     Dosage: 100 MCG / 50 MCG
  8. ADVAIR HFA [Concomitant]
     Dosage: 500 MCG / 50 MCG
  9. FLUTICASONE PROPIONATE [Concomitant]
     Dosage: 2 SPRAYS DAILY
  10. FOSAMAX [Concomitant]
     Dosage: 70 MG, QW
  11. KLONOPIN [Concomitant]
     Indication: MUSCLE SPASMS
     Dosage: 1 TABLET QHS
  12. MULTIVITAMINS, COMBINATIONS [Concomitant]
     Dosage: UNK, DAILY
  13. LIDODERM [Concomitant]
     Indication: PAIN
     Dosage: UP TO THREE DAYS, PRN
     Route: 062
  14. DUONEB [Concomitant]
     Dosage: UNK, PRN
  15. KETOPROFEN [Concomitant]
  16. LIDOCAINE [Concomitant]
  17. PLO [Concomitant]

REACTIONS (7)
  - ABASIA [None]
  - ARTHRALGIA [None]
  - CONDITION AGGRAVATED [None]
  - INFLUENZA LIKE ILLNESS [None]
  - MYALGIA [None]
  - PAIN [None]
  - QUALITY OF LIFE DECREASED [None]
